FAERS Safety Report 23068872 (Version 1)
Quarter: 2023Q4

REPORT INFORMATION
  Report Type: Other
  Country: IT (occurrence: None)
  Receive Date: 20231016
  Receipt Date: 20231016
  Transmission Date: 20240110
  Serious: Yes (Other)
  Sender: FDA-Public Use
  Company Number: None

PATIENT
  Age: 73 Year
  Sex: Female
  Weight: 74 kg

DRUGS (3)
  1. TRASTUZUMAB [Suspect]
     Active Substance: TRASTUZUMAB
     Indication: Breast cancer stage IV
     Dosage: II CYCLE - START OF THERAPY 16/MAY/2023 - THERAPY DAY 1 CYCLE 15 DAYS
     Route: 065
     Dates: start: 20230606, end: 20230606
  2. PERTUZUMAB [Suspect]
     Active Substance: PERTUZUMAB
     Indication: Breast cancer stage IV
     Dosage: II CYCLE - START OF THERAPY 16/MAY/2023 - THERAPY DAY 1 CYCLE 15 DAYS
     Route: 065
     Dates: start: 20230606, end: 20230606
  3. PACLITAXEL [Suspect]
     Active Substance: PACLITAXEL
     Indication: Breast cancer stage IV
     Dosage: WEEKLY ADMINISTRATION - START OF THERAPY 05/16/2023 - V WEEK OF ADMINISTRATION (DAY 8 OF THE SECOND
     Route: 065
     Dates: start: 20230613, end: 20230613

REACTIONS (9)
  - Decreased appetite [Recovered/Resolved]
  - Asthenia [Recovering/Resolving]
  - Off label use [Unknown]
  - Diarrhoea [Recovering/Resolving]
  - Neutropenia [Recovering/Resolving]
  - Asthenia [Recovering/Resolving]
  - Dehydration [Recovering/Resolving]
  - Muscle atrophy [Recovering/Resolving]
  - Leukopenia [Recovering/Resolving]

NARRATIVE: CASE EVENT DATE: 20230613
